FAERS Safety Report 14029126 (Version 2)
Quarter: 2018Q4

REPORT INFORMATION
  Report Type: Report from Study
  Country: US (occurrence: US)
  Receive Date: 20170930
  Receipt Date: 20181114
  Transmission Date: 20190204
  Serious: Yes (Hospitalization)
  Sender: FDA-Public Use
  Company Number: US-SA-2017SA119075

PATIENT
  Age: 49 Year
  Sex: Female
  Weight: 68.4 kg

DRUGS (3)
  1. TERIFLUNOMIDE. [Suspect]
     Active Substance: TERIFLUNOMIDE
     Indication: MULTIPLE SCLEROSIS
     Dosage: 14 MG,QD
     Route: 048
     Dates: start: 20170608
  2. MEFENAMIC ACID. [Concomitant]
     Active Substance: MEFENAMIC ACID
  3. PARACETAMOL [Concomitant]
     Active Substance: ACETAMINOPHEN

REACTIONS (14)
  - Dysphagia [Unknown]
  - Alopecia [Not Recovered/Not Resolved]
  - Depression [Unknown]
  - Dysphonia [Unknown]
  - Blood cholesterol increased [Unknown]
  - Paraesthesia [Unknown]
  - Neck surgery [Not Recovered/Not Resolved]
  - Depressed mood [Unknown]
  - Muscle tightness [Unknown]
  - Condition aggravated [Unknown]
  - Stress [Unknown]
  - Hypoaesthesia [Unknown]
  - White blood cell count decreased [Recovered/Resolved]
  - White blood cell count decreased [Unknown]

NARRATIVE: CASE EVENT DATE: 201706
